FAERS Safety Report 13562415 (Version 1)
Quarter: 2017Q2

REPORT INFORMATION
  Report Type: Spontaneous
  Country: US (occurrence: US)
  Receive Date: 20170519
  Receipt Date: 20170519
  Transmission Date: 20170830
  Serious: No
  Sender: FDA-Public Use
  Company Number: US-ASTRAZENECA-2017SE53218

PATIENT
  Age: 59 Year
  Sex: Female

DRUGS (1)
  1. XIGDUO XR [Suspect]
     Active Substance: DAPAGLIFLOZIN PROPANEDIOL\METFORMIN HYDROCHLORIDE
     Indication: TYPE 2 DIABETES MELLITUS
     Dosage: 10/1000 MG, DAILY WITH MEALS
     Route: 048
     Dates: start: 201611

REACTIONS (3)
  - Fungal infection [Unknown]
  - Genital infection fungal [Recovered/Resolved]
  - Glycosylated haemoglobin increased [Unknown]
